FAERS Safety Report 16971007 (Version 6)
Quarter: 2020Q2

REPORT INFORMATION
  Report Type: Report from Study
  Country: None (occurrence: US)
  Receive Date: 20191029
  Receipt Date: 20200617
  Transmission Date: 20200713
  Serious: Yes (Hospitalization, Other)
  Sender: FDA-Public Use
  Company Number: US-ABBVIE-19K-163-2975125-00

PATIENT
  Sex: Male
  Weight: 87.17 kg

DRUGS (3)
  1. HUMIRA [Suspect]
     Active Substance: ADALIMUMAB
     Indication: PSORIATIC ARTHROPATHY
     Route: 058
     Dates: start: 2019, end: 201912
  2. HUMIRA [Suspect]
     Active Substance: ADALIMUMAB
     Indication: PSORIASIS
     Dosage: HUMIRA CITRATE FREE
     Route: 058
     Dates: start: 20190520, end: 201910
  3. HUMIRA [Suspect]
     Active Substance: ADALIMUMAB
     Route: 058

REACTIONS (10)
  - Myocardial infarction [Unknown]
  - Diabetes mellitus [Unknown]
  - Visual impairment [Unknown]
  - Laboratory test abnormal [Unknown]
  - Tooth disorder [Unknown]
  - Haemorrhoids [Unknown]
  - Influenza [Not Recovered/Not Resolved]
  - Anaemia [Not Recovered/Not Resolved]
  - Post procedural haemorrhage [Recovered/Resolved]
  - Cardiac disorder [Unknown]

NARRATIVE: CASE EVENT DATE: 2019
